FAERS Safety Report 23761565 (Version 1)
Quarter: 2024Q2

REPORT INFORMATION
  Report Type: Spontaneous
  Country: US (occurrence: US)
  Receive Date: 20240419
  Receipt Date: 20240419
  Transmission Date: 20240716
  Serious: No
  Sender: FDA-Public Use
  Company Number: US-GSKCCFUS-Case-01983615_AE-110134

PATIENT
  Sex: Male

DRUGS (1)
  1. TRELEGY ELLIPTA [Suspect]
     Active Substance: FLUTICASONE FUROATE\UMECLIDINIUM BROMIDE\VILANTEROL TRIFENATATE
     Indication: Product used for unknown indication
     Dosage: 1 PUFF(S), QD; 200/62.5/25MCG

REACTIONS (6)
  - Dysphonia [Not Recovered/Not Resolved]
  - Sinus congestion [Not Recovered/Not Resolved]
  - Wheezing [Not Recovered/Not Resolved]
  - Dry throat [Not Recovered/Not Resolved]
  - Cough [Not Recovered/Not Resolved]
  - Drug ineffective [Unknown]
